FAERS Safety Report 8071001-X (Version None)
Quarter: 2012Q1

REPORT INFORMATION
  Report Type: 
  Country: None (occurrence: None)
  Receive Date: 20120125
  Receipt Date: 20120116
  Transmission Date: 20120608
  Serious: Yes (Other)
  Sender: FDA-Public Use
  Company Number: CHPA2012US001407

PATIENT
  Age: 53 Year
  Sex: Female

DRUGS (2)
  1. ASPIRIN [Suspect]
     Indication: CARDIAC DISORDER
     Dosage: UNK, UNK
     Route: 048
  2. EXCEDRIN (MIGRAINE) [Suspect]
     Indication: RETINAL MIGRAINE
     Dosage: 0.5-2 TABLETS, UNK
     Route: 048
     Dates: start: 20090101, end: 20120101

REACTIONS (8)
  - URINARY TRACT INFECTION [None]
  - HAEMORRHAGE [None]
  - DRUG ADMINISTRATION ERROR [None]
  - THROMBOSIS [None]
  - BLADDER PAIN [None]
  - CHILLS [None]
  - PYREXIA [None]
  - UNDERDOSE [None]
